FAERS Safety Report 6828631-X (Version None)
Quarter: 2010Q3

REPORT INFORMATION
  Report Type: 
  Country: None (occurrence: None)
  Receive Date: 20100709
  Receipt Date: 20070215
  Transmission Date: 20110219
  Serious: Yes (Other)
  Sender: FDA-Public Use
  Company Number: US-PFIZER INC-2007012362

PATIENT
  Sex: Male
  Weight: 92.5 kg

DRUGS (6)
  1. CHANTIX [Suspect]
     Indication: EX-TOBACCO USER
     Dates: start: 20070101
  2. PROZAC [Concomitant]
  3. PERCOCET [Concomitant]
  4. ISOSORBIDE DINITRATE [Concomitant]
  5. METOPROLOL TARTRATE [Concomitant]
  6. CLONAZEPAM [Concomitant]

REACTIONS (3)
  - ANGINA PECTORIS [None]
  - BLOOD PRESSURE INCREASED [None]
  - TACHYCARDIA [None]
